FAERS Safety Report 8882294 (Version 1)
Quarter: 2012Q4

REPORT INFORMATION
  Report Type: 
  Country: US (occurrence: US)
  Receive Date: 20121102
  Receipt Date: 20121102
  Transmission Date: 20130627
  Serious: Yes (Other)
  Sender: FDA-Public Use
  Company Number: US-ROCHE-1125613

PATIENT
  Sex: Female

DRUGS (2)
  1. HERCEPTIN [Suspect]
     Indication: BREAST CANCER METASTATIC
     Dosage: loading dose
     Route: 065
     Dates: start: 19990514
  2. HERCEPTIN [Suspect]
     Indication: METASTASES TO BONE MARROW
     Dosage: maintenance dose
     Route: 065

REACTIONS (2)
  - Disease progression [Unknown]
  - Cardiac failure congestive [Unknown]
